FAERS Safety Report 6478019-9 (Version None)
Quarter: 2009Q4

REPORT INFORMATION
  Report Type: 
  Country: None (occurrence: None)
  Receive Date: 20091207
  Receipt Date: 20091130
  Transmission Date: 20100525
  Serious: Yes (Other)
  Sender: FDA-Public Use
  Company Number: B0611522A

PATIENT
  Age: 53 Year
  Sex: Male

DRUGS (1)
  1. ZOFRAN [Suspect]
     Dosage: 8MG PER DAY
     Route: 042
     Dates: start: 20091123, end: 20091126

REACTIONS (3)
  - INJECTION SITE RASH [None]
  - PRODUCT QUALITY ISSUE [None]
  - URTICARIA [None]
